FAERS Safety Report 10169337 (Version 1)
Quarter: 2014Q2

REPORT INFORMATION
  Report Type: Spontaneous
  Country: US (occurrence: US)
  Receive Date: 20140513
  Receipt Date: 20140513
  Transmission Date: 20141212
  Serious: No
  Sender: FDA-Public Use
  Company Number: US-PFIZER INC-2014128108

PATIENT
  Age: 65 Year
  Sex: Female

DRUGS (1)
  1. ESTRING [Suspect]
     Dosage: UNK, EVERY 3 MONTHS
     Route: 067
     Dates: end: 201405

REACTIONS (2)
  - Vulvovaginal pain [Unknown]
  - Product quality issue [Unknown]
